FAERS Safety Report 7397002-2 (Version None)
Quarter: 2011Q1

REPORT INFORMATION
  Report Type: 
  Country: None (occurrence: None)
  Receive Date: 20110331
  Receipt Date: 20110331
  Transmission Date: 20110831
  Serious: No
  Sender: FDA-Public Use
  Company Number: None

PATIENT
  Sex: Male
  Weight: 64.4108 kg

DRUGS (1)
  1. CETIRIZINE HCL [Suspect]
     Dosage: 10MG
     Dates: start: 20091101

REACTIONS (5)
  - INSOMNIA [None]
  - REBOUND EFFECT [None]
  - THERAPEUTIC RESPONSE UNEXPECTED [None]
  - PRODUCT SUBSTITUTION ISSUE [None]
  - DRUG TOLERANCE [None]
